FAERS Safety Report 4274076-9 (Version None)
Quarter: 2004Q1

REPORT INFORMATION
  Report Type: 
  Country: None (occurrence: None)
  Receive Date: 20040115
  Receipt Date: 20040105
  Transmission Date: 20041129
  Serious: Yes (Life-Threatening, Hospitalization)
  Sender: FDA-Public Use
  Company Number: 200310654BFR

PATIENT
  Age: 78 Year
  Sex: Female

DRUGS (5)
  1. CIPROFLOXACIN [Suspect]
     Indication: PYELONEPHRITIS
     Dosage: 1 G, TOTAL DAILY, ORAL
     Route: 048
     Dates: start: 20031215, end: 20031218
  2. GARAMYCIN [Concomitant]
  3. SECTRAL [Concomitant]
  4. TRIMETAZIDINE [Concomitant]
  5. COVERSYL [Concomitant]

REACTIONS (2)
  - ELECTROCARDIOGRAM QT PROLONGED [None]
  - VENTRICULAR EXTRASYSTOLES [None]
